FAERS Safety Report 11073611 (Version 1)
Quarter: 2015Q2

REPORT INFORMATION
  Report Type: Spontaneous
  Country: FR (occurrence: FR)
  Receive Date: 20150428
  Receipt Date: 20150428
  Transmission Date: 20150821
  Serious: Yes (Hospitalization, Other)
  Sender: FDA-Public Use
  Company Number: FR-PFIZER INC-2015137886

PATIENT
  Age: 88 Year
  Sex: Male

DRUGS (2)
  1. LYRICA [Suspect]
     Active Substance: PREGABALIN
     Dosage: 50 MG, 1X/DAY
     Dates: start: 20150325, end: 20150327
  2. KARDEGIC [Concomitant]
     Active Substance: ASPIRIN LYSINE

REACTIONS (7)
  - Malaise [Recovered/Resolved]
  - Cerebral haematoma [Unknown]
  - Subarachnoid haemorrhage [Unknown]
  - Fall [Recovered/Resolved]
  - Somnolence [Recovered/Resolved]
  - Pneumocephalus [Unknown]
  - Jaw fracture [Unknown]

NARRATIVE: CASE EVENT DATE: 20150327
